FAERS Safety Report 19711240 (Version 2)
Quarter: 2021Q3

REPORT INFORMATION
  Report Type: Report from Study
  Country: US (occurrence: US)
  Receive Date: 20210816
  Receipt Date: 20210817
  Transmission Date: 20211014
  Serious: Yes (Hospitalization)
  Sender: FDA-Public Use
  Company Number: US-EISAI MEDICAL RESEARCH-EC-2021-097688

PATIENT
  Age: 79 Year
  Sex: Female

DRUGS (7)
  1. PEMBROLIZUMAB. [Suspect]
     Active Substance: PEMBROLIZUMAB
     Indication: COLORECTAL CANCER
     Dosage: UP TO 18 CYCLES
     Route: 041
     Dates: start: 20210630, end: 20210630
  2. LENVATINIB [Suspect]
     Active Substance: LENVATINIB
     Indication: COLORECTAL CANCER
     Dosage: STARTING DOSE AT 20 MILLIGRAM, (FLUCTUATED DOSE)
     Route: 048
     Dates: start: 20210630, end: 20210727
  3. ADVIL [Concomitant]
     Active Substance: IBUPROFEN
     Dates: start: 20210714
  4. SYNTHROID [Concomitant]
     Active Substance: LEVOTHYROXINE SODIUM
     Dates: start: 20210730
  5. LASIX [Concomitant]
     Active Substance: FUROSEMIDE
     Dates: start: 20210714
  6. LENVATINIB [Suspect]
     Active Substance: LENVATINIB
     Route: 048
     Dates: start: 20210728, end: 20210804
  7. HYDROCHLOROTHIAZIDE. [Concomitant]
     Active Substance: HYDROCHLOROTHIAZIDE
     Dates: start: 20181231

REACTIONS (1)
  - Cholecystitis acute [Recovered/Resolved]

NARRATIVE: CASE EVENT DATE: 20210805
